FAERS Safety Report 9877075 (Version 2)
Quarter: 2014Q1

REPORT INFORMATION
  Report Type: Spontaneous
  Country: US (occurrence: US)
  Receive Date: 20140206
  Receipt Date: 20140226
  Transmission Date: 20141002
  Serious: No
  Sender: FDA-Public Use
  Company Number: US-PFIZER INC-2014029932

PATIENT
  Sex: Female

DRUGS (3)
  1. CELEBREX [Suspect]
     Indication: PAIN
     Dosage: 200 MG, DAILY
     Route: 048
  2. CELEBREX [Suspect]
     Indication: FIBROMYALGIA
  3. CELEBREX [Suspect]
     Indication: RHEUMATOID ARTHRITIS

REACTIONS (3)
  - Off label use [Unknown]
  - Bleeding time prolonged [Unknown]
  - Drug hypersensitivity [Unknown]
